FAERS Safety Report 14330092 (Version 2)
Quarter: 2017Q4

REPORT INFORMATION
  Report Type: Spontaneous
  Country: JP (occurrence: JP)
  Receive Date: 20171227
  Receipt Date: 20171229
  Transmission Date: 20180321
  Serious: Yes (Other)
  Sender: FDA-Public Use
  Company Number: JP-009507513-1712JPN002600J

PATIENT
  Age: 75 Year
  Sex: Male

DRUGS (8)
  1. ATELEC [Suspect]
     Active Substance: CILNIDIPINE
     Dosage: 5 MG, QD
     Route: 048
     Dates: start: 201502
  2. PLETAAL OD [Suspect]
     Active Substance: CILOSTAZOL
     Dosage: 100 MG, BID
     Route: 048
     Dates: start: 201701
  3. DESALEX TABLETS 5MG [Suspect]
     Active Substance: DESLORATADINE
     Indication: PRURITUS
     Dosage: 5 MG, QD
     Route: 048
     Dates: start: 20171120, end: 20171203
  4. DESALEX TABLETS 5MG [Suspect]
     Active Substance: DESLORATADINE
     Dosage: 5 MG, QD
     Route: 048
     Dates: start: 20171220
  5. EQUMET [Suspect]
     Active Substance: METFORMIN HYDROCHLORIDE\VILDAGLIPTIN
     Dosage: 1 DF, BID
     Route: 048
     Dates: start: 201701
  6. PRAVASTATIN NA [Suspect]
     Active Substance: PRAVASTATIN SODIUM
     Dosage: 10 MG, QD
     Route: 048
     Dates: start: 20140310
  7. GLUCOBAY [Suspect]
     Active Substance: ACARBOSE
     Dosage: 100 MG, TID
     Route: 048
     Dates: start: 20140310
  8. FEXOFENADINE HYDROCHLORIDE. [Concomitant]
     Active Substance: FEXOFENADINE HYDROCHLORIDE
     Dosage: UNK
     Route: 048

REACTIONS (1)
  - Urinary retention [Recovering/Resolving]

NARRATIVE: CASE EVENT DATE: 20171206
